FAERS Safety Report 15348062 (Version 1)
Quarter: 2018Q3

REPORT INFORMATION
  Report Type: Spontaneous
  Country: GB (occurrence: GB)
  Receive Date: 20180904
  Receipt Date: 20180904
  Transmission Date: 20181010
  Serious: Yes (Other)
  Sender: FDA-Public Use
  Company Number: GB-PFIZER INC-2018347383

PATIENT
  Age: 47 Year
  Sex: Male
  Weight: 83 kg

DRUGS (4)
  1. TESTOSTERONE. [Concomitant]
     Active Substance: TESTOSTERONE
     Dosage: UNK
  2. GABAPENTIN. [Suspect]
     Active Substance: GABAPENTIN
     Indication: RESTLESS LEGS SYNDROME
     Dosage: 300 MG, UNK
     Route: 048
     Dates: start: 20180521, end: 20180712
  3. STEXEROL D3 [Concomitant]
     Dosage: UNK
  4. SERTRALINE [Concomitant]
     Active Substance: SERTRALINE HYDROCHLORIDE
     Dosage: UNK

REACTIONS (12)
  - Abnormal behaviour [Recovering/Resolving]
  - Memory impairment [Unknown]
  - Suicidal ideation [Recovered/Resolved]
  - Product use in unapproved indication [Unknown]
  - Anxiety [Recovering/Resolving]
  - Amnesia [Recovering/Resolving]
  - Gingival pain [Not Recovered/Not Resolved]
  - Agitation [Recovered/Resolved]
  - Restlessness [Recovering/Resolving]
  - Disturbance in attention [Recovering/Resolving]
  - Mood altered [Recovered/Resolved]
  - Somnolence [Recovering/Resolving]

NARRATIVE: CASE EVENT DATE: 20180522
